FAERS Safety Report 4682446-X (Version None)
Quarter: 2005Q2

REPORT INFORMATION
  Report Type: 
  Country: None (occurrence: None)
  Receive Date: 20050606
  Receipt Date: 20040908
  Transmission Date: 20051028
  Serious: Yes (Hospitalization)
  Sender: FDA-Public Use
  Company Number: US-ROCHE-380104

PATIENT
  Age: 51 Year
  Sex: Male
  Weight: 63.5 kg

DRUGS (33)
  1. GRANISETRON  HCL [Suspect]
     Indication: DRUG USE FOR UNKNOWN INDICATION
     Route: 042
     Dates: start: 20040828, end: 20040828
  2. DARBEPOETIN ALFA [Suspect]
     Indication: ANAEMIA OF MALIGNANT DISEASE
     Route: 058
     Dates: start: 20030821, end: 20031115
  3. DRONABINOL [Suspect]
     Route: 065
  4. OXYCODONE HCL [Suspect]
     Route: 065
     Dates: start: 20030806, end: 20030905
  5. GABAPENTIN [Suspect]
     Route: 065
  6. DONEPEZIL HCL [Suspect]
     Route: 065
  7. ZOLPIDEM TARTRATE [Suspect]
     Route: 065
  8. MORPHINE SULFATE [Concomitant]
     Dates: start: 20030713, end: 20030905
  9. CHLORPROMAZINE [Concomitant]
     Dates: start: 20030703
  10. OXYIR [Concomitant]
     Dates: start: 20030901
  11. TACROLIMUS [Concomitant]
     Dates: start: 20030103
  12. PANTOPRAZOLE [Concomitant]
     Dates: start: 20030910
  13. PRANDIN [Concomitant]
     Dates: start: 20030821
  14. SERTRALINE HYDROCHLORIDE [Concomitant]
     Dates: start: 20020501
  15. GLIPIZIDE [Concomitant]
     Dates: start: 20030115
  16. NIFEDIPINE [Concomitant]
     Dates: start: 20030115
  17. MAGNESIUM [Concomitant]
     Dates: start: 20030103
  18. LEVOFLOXACINE [Concomitant]
     Dates: start: 20030903, end: 20030910
  19. PENTAMIDINE [Concomitant]
     Dates: start: 20030103
  20. PERI-COLACE [Concomitant]
     Dates: start: 20030115
  21. BISACODYL [Concomitant]
     Dates: start: 20030115
  22. ACETYLSALICYLIC ACID [Concomitant]
     Dates: start: 20030115
  23. FRUSEMIDE [Concomitant]
     Route: 042
     Dates: start: 20030828, end: 20030828
  24. SARGAMOSTIM [Concomitant]
     Route: 058
     Dates: start: 20030929, end: 20031004
  25. DEXAMETHASONE [Concomitant]
     Route: 042
     Dates: start: 20030828, end: 20030828
  26. DOXORUBICIN HCL [Concomitant]
  27. CISPLATIN [Concomitant]
  28. SENNA FRUIT [Concomitant]
  29. PROPRANOLOL [Concomitant]
  30. MULTI-VITAMINS [Concomitant]
  31. INSULIN [Concomitant]
  32. SPIRONOLACTONE [Concomitant]
  33. MEGESTROL ACETATE [Concomitant]

REACTIONS (11)
  - ANAEMIA [None]
  - CONVULSION [None]
  - DISEASE PROGRESSION [None]
  - GASTROINTESTINAL HAEMORRHAGE [None]
  - HAEMOLYTIC ANAEMIA [None]
  - LIVER TRANSPLANT REJECTION [None]
  - MENTAL STATUS CHANGES [None]
  - METABOLIC ENCEPHALOPATHY [None]
  - NAUSEA [None]
  - PANCYTOPENIA [None]
  - VOMITING [None]
